FAERS Safety Report 11771507 (Version 1)
Quarter: 2015Q4

REPORT INFORMATION
  Report Type: Spontaneous
  Country: US (occurrence: None)
  Receive Date: 20151123
  Receipt Date: 20151123
  Transmission Date: 20160304
  Serious: Yes (Hospitalization)
  Sender: FDA-Public Use
  Company Number: None

PATIENT
  Age: 55 Year

DRUGS (3)
  1. DILATIZEAM OINTMENT [Concomitant]
  2. ADULT GUMMY VITAMINS [Concomitant]
  3. PROPOFOL. [Suspect]
     Active Substance: PROPOFOL

REACTIONS (12)
  - Pyrexia [None]
  - Systemic inflammatory response syndrome [None]
  - Malaise [None]
  - Agitation [None]
  - Tremor [None]
  - Nausea [None]
  - Fear [None]
  - Heart rate increased [None]
  - Chest discomfort [None]
  - Fall [None]
  - Hypertension [None]
  - Chills [None]

NARRATIVE: CASE EVENT DATE: 20151117
